FAERS Safety Report 7209063-1 (Version None)
Quarter: 2010Q4

REPORT INFORMATION
  Report Type: 
  Country: None (occurrence: None)
  Receive Date: 20101222
  Receipt Date: 20101215
  Transmission Date: 20110411
  Serious: No
  Sender: FDA-Public Use
  Company Number: 2010JP007173

PATIENT
  Age: 80 Year
  Sex: Female

DRUGS (10)
  1. VESICARE [Suspect]
     Dosage: 5 MG, ORAL
     Route: 048
     Dates: start: 20101115
  2. CRESTOR (ROSUVASTATIN CALCIUM) PER ORAL NOS [Concomitant]
  3. NIFEDIPINE (NIFEDIPINE) PER ORAL NOS [Concomitant]
  4. ACETYLSALICYLIC ACID SRT [Concomitant]
  5. WARKMIN (ALFACALCIDOL) FORMULATION UNKNOWN [Concomitant]
  6. BLOPRESS (CANDESARTAN CILEXETIL) PER ORAL NOS [Concomitant]
  7. METHYCOBAL (MECOBALAMIN) FORMULATION UNKNOWN [Concomitant]
  8. HANGEKOUBOKUTOU (HERBAL EXTRACT NOS) FORMULATION UNKNOWN [Concomitant]
  9. SERMION (NICERGOLINE) FORMULATION UNKNOWN [Concomitant]
  10. FOLIAMIN (FOLIC ACID) FORMULATION UNKNOWN [Concomitant]

REACTIONS (1)
  - CHROMATURIA [None]
